FAERS Safety Report 7262544-7 (Version None)
Quarter: 2011Q1

REPORT INFORMATION
  Report Type: 
  Country: None (occurrence: None)
  Receive Date: 20110130
  Receipt Date: 20101209
  Transmission Date: 20110831
  Serious: Yes (Other)
  Sender: FDA-Public Use
  Company Number: US-ABBOTT-10P-163-0690725-00

PATIENT
  Sex: Female

DRUGS (4)
  1. VERAPAMIL [Concomitant]
     Indication: BLOOD PRESSURE
  2. DIAZIDE [Concomitant]
     Indication: BLOOD PRESSURE
  3. HUMIRA [Suspect]
     Indication: RHEUMATOID ARTHRITIS
  4. ARAVA [Concomitant]
     Indication: PRODUCT USED FOR UNKNOWN INDICATION

REACTIONS (1)
  - SQUAMOUS CELL CARCINOMA [None]
